FAERS Safety Report 9500275 (Version 3)
Quarter: 2013Q4

REPORT INFORMATION
  Report Type: Spontaneous
  Country: US (occurrence: None)
  Receive Date: 20130903
  Receipt Date: 20131016
  Transmission Date: 20140711
  Serious: Yes (Hospitalization, Other)
  Sender: FDA-Public Use
  Company Number: 2013US002358

PATIENT
  Age: 70 Year
  Sex: Male
  Weight: 58 kg

DRUGS (13)
  1. PONATINIB [Suspect]
     Indication: ACUTE LYMPHOCYTIC LEUKAEMIA
     Route: 048
     Dates: start: 20130503, end: 20130803
  2. ALLOPURINOL (ALLOPURINOL) [Concomitant]
  3. ASPIRIN (ASPIRIN) [Concomitant]
  4. CIPRO (CIPROFLOXACIN) [Concomitant]
  5. COLCHICINE (COLCHICINE) [Concomitant]
  6. SYNTHROID (LEVOTHYROXINE SODIUM) [Concomitant]
  7. MAGNESIUM PROTEIN COMPLEX (MAGNESIUM CARBONATE) [Concomitant]
  8. LOPRESSOR (METOPROLOL TARTRATE) [Concomitant]
  9. PROTONIX (PANTOPRAZOLE SODIUM SESQUIHYDRATE) [Concomitant]
  10. POTASSIUM CHLORIDE (POTASSIUM CHLORIDE) [Concomitant]
  11. CRESTOR (ROSUVASTATIN CALCIUM) [Concomitant]
  12. VALTREX (VALACICLOVIR HYDROCHLORIDE) [Concomitant]
  13. VORICONAZOLE (VORICONAZOLE) [Concomitant]

REACTIONS (8)
  - Dysphagia [None]
  - Cerebral venous thrombosis [None]
  - Mental status changes [None]
  - Failure to thrive [None]
  - Asthenia [None]
  - Spinal osteoarthritis [None]
  - Hyperglycaemia [None]
  - Malnutrition [None]
